FAERS Safety Report 22259310 (Version 1)
Quarter: 2023Q2

REPORT INFORMATION
  Report Type: Spontaneous
  Country: US (occurrence: None)
  Receive Date: 20230426
  Receipt Date: 20230426
  Transmission Date: 20230722
  Serious: Yes (Hospitalization)
  Sender: FDA-Public Use
  Company Number: None

PATIENT
  Age: 58 Year
  Sex: Female
  Weight: 69.9 kg

DRUGS (2)
  1. VANCOMYCIN [Suspect]
     Active Substance: VANCOMYCIN
     Indication: Staphylococcal infection
     Dosage: 1250 MG TWICE A DAY INTRAVENOUS BOLUS ?
     Route: 040
     Dates: start: 20221208, end: 20221226
  2. PIPERACILLIN SODIUM\TAZOBACTAM SODIUM [Suspect]
     Active Substance: PIPERACILLIN SODIUM\TAZOBACTAM SODIUM
     Indication: Staphylococcal infection
     Dosage: 3.375 G GRAM (S) 3 TIMES A DAY INTRAVENOUS BOLUS
     Route: 040
     Dates: start: 20221208, end: 20221226

REACTIONS (4)
  - Drug eruption [None]
  - Groin pain [None]
  - Pyrexia [None]
  - Eosinophilia [None]

NARRATIVE: CASE EVENT DATE: 20221223
